FAERS Safety Report 4745505-9 (Version None)
Quarter: 2005Q3

REPORT INFORMATION
  Report Type: 
  Country: None (occurrence: None)
  Receive Date: 20050815
  Receipt Date: 20050302
  Transmission Date: 20060218
  Serious: Yes (Hospitalization, Disabling)
  Sender: FDA-Public Use
  Company Number: US-MERCK-0503USA00666

PATIENT
  Age: 43 Year
  Sex: Male
  Weight: 86 kg

DRUGS (8)
  1. VIOXX [Suspect]
     Indication: BACK PAIN
     Route: 048
     Dates: end: 20020101
  2. VIOXX [Suspect]
     Route: 048
     Dates: start: 20020101
  3. VIOXX [Suspect]
     Route: 048
     Dates: end: 20040101
  4. VIOXX [Suspect]
     Indication: ARTHRALGIA
     Route: 048
     Dates: start: 20000101
  5. VIOXX [Suspect]
     Route: 048
     Dates: end: 20020101
  6. VIOXX [Suspect]
     Route: 048
     Dates: start: 20020101
  7. VIOXX [Suspect]
     Route: 048
     Dates: end: 20040101
  8. VIOXX [Suspect]
     Route: 048
     Dates: start: 20000101

REACTIONS (22)
  - ABDOMINAL DISTENSION [None]
  - ANOREXIA [None]
  - ANXIETY [None]
  - BLOOD CHOLESTEROL INCREASED [None]
  - CEREBROVASCULAR ACCIDENT [None]
  - CONSTIPATION [None]
  - DIARRHOEA [None]
  - DILATATION ATRIAL [None]
  - DISTURBANCE IN ATTENTION [None]
  - DYSPEPSIA [None]
  - FATIGUE [None]
  - GOUT [None]
  - HEADACHE [None]
  - HYPERHIDROSIS [None]
  - INSOMNIA [None]
  - JOINT INJURY [None]
  - KNEE OPERATION [None]
  - MALAISE [None]
  - MEMORY IMPAIRMENT [None]
  - MITRAL VALVE INCOMPETENCE [None]
  - PALPITATIONS [None]
  - SINUS DISORDER [None]
